FAERS Safety Report 7902062-3 (Version None)
Quarter: 2011Q4

REPORT INFORMATION
  Report Type: 
  Country: None (occurrence: None)
  Receive Date: 20111108
  Receipt Date: 20111031
  Transmission Date: 20120403
  Serious: Yes (Hospitalization)
  Sender: FDA-Public Use
  Company Number: JP-GLAXOSMITHKLINE-B0760590A

PATIENT
  Age: 59 Year
  Sex: Male
  Weight: 69 kg

DRUGS (13)
  1. CLOBETASOL PROPIONATE [Suspect]
     Indication: PSORIASIS
     Route: 061
  2. ASPIRIN [Concomitant]
     Route: 048
  3. LOSARTAN POTASSIUM [Concomitant]
     Route: 048
  4. LIPITOR [Concomitant]
     Route: 048
  5. ANTEBATE [Concomitant]
     Route: 061
  6. TIGASON [Concomitant]
     Route: 048
  7. UNKNOWN DRUG [Concomitant]
     Route: 061
  8. CARVEDILOL [Concomitant]
     Route: 048
  9. ISOSORBIDE MONONITRATE [Concomitant]
     Route: 048
  10. ATARAX [Concomitant]
     Route: 048
  11. FAMOTIDINE [Concomitant]
     Route: 048
  12. ALLEGRA [Concomitant]
     Route: 048
  13. RULID [Concomitant]
     Route: 048

REACTIONS (3)
  - DIABETES MELLITUS [None]
  - INCORRECT DRUG ADMINISTRATION DURATION [None]
  - GLYCOSYLATED HAEMOGLOBIN INCREASED [None]
